FAERS Safety Report 9717505 (Version 1)
Quarter: 2013Q4

REPORT INFORMATION
  Report Type: Spontaneous
  Country: US (occurrence: US)
  Receive Date: 20131127
  Receipt Date: 20131127
  Transmission Date: 20140711
  Serious: No
  Sender: FDA-Public Use
  Company Number: US-GILEAD-2009-0020428

PATIENT
  Sex: Female
  Weight: 55.79 kg

DRUGS (9)
  1. LETAIRIS [Suspect]
     Indication: PULMONARY ARTERIAL HYPERTENSION
     Route: 048
     Dates: start: 20081023
  2. COUMADIN [Concomitant]
  3. DEMADEX [Concomitant]
  4. CARVEDILOL [Concomitant]
  5. OXYGEN [Concomitant]
  6. PLAQUENIL [Concomitant]
  7. VICODIN [Concomitant]
  8. ALEVE [Concomitant]
  9. VITAMIN E [Concomitant]

REACTIONS (1)
  - Dizziness [Unknown]
